FAERS Safety Report 25712038 (Version 1)
Quarter: 2025Q3

REPORT INFORMATION
  Report Type: Spontaneous
  Country: TR (occurrence: TR)
  Receive Date: 20250821
  Receipt Date: 20250821
  Transmission Date: 20251020
  Serious: Yes (Other)
  Sender: PFIZER
  Company Number: TR-PFIZER INC-202500165831

PATIENT
  Age: 58 Year
  Sex: Male

DRUGS (1)
  1. RAPAMUNE [Suspect]
     Active Substance: SIROLIMUS
     Indication: Renal transplant

REACTIONS (1)
  - Toxicity to various agents [Unknown]
